FAERS Safety Report 10204123 (Version 2)
Quarter: 2014Q2

REPORT INFORMATION
  Report Type: Report from Study
  Country: US (occurrence: US)
  Receive Date: 20140529
  Receipt Date: 20140602
  Transmission Date: 20141212
  Serious: Yes (Hospitalization, Other)
  Sender: FDA-Public Use
  Company Number: US-ABBVIE-14P-163-1239298-00

PATIENT
  Age: 60 Year
  Sex: Female
  Weight: 44.95 kg

DRUGS (6)
  1. HUMIRA [Suspect]
     Indication: RHEUMATOID ARTHRITIS
     Dates: start: 2009
  2. LINZESS [Concomitant]
     Indication: BOWEL MOVEMENT IRREGULARITY
  3. CELLCEPT [Concomitant]
     Indication: RHEUMATOID ARTHRITIS
  4. DILANTIN [Concomitant]
     Indication: CONVULSION
  5. LYRICA [Concomitant]
     Indication: NEURALGIA
  6. LEXAPRO [Concomitant]
     Indication: DEPRESSION

REACTIONS (9)
  - Dementia Alzheimer^s type [Not Recovered/Not Resolved]
  - Systemic lupus erythematosus [Not Recovered/Not Resolved]
  - Large intestinal obstruction [Recovered/Resolved]
  - Incisional hernia [Recovered/Resolved]
  - Constipation [Recovered/Resolved]
  - Colitis ulcerative [Recovered/Resolved]
  - Gastrointestinal infection [Recovered/Resolved]
  - Memory impairment [Not Recovered/Not Resolved]
  - Depression [Not Recovered/Not Resolved]
